FAERS Safety Report 8654931 (Version 2)
Quarter: 2012Q4

REPORT INFORMATION
  Report Type: 
  Country: JP (occurrence: JP)
  Receive Date: 20120709
  Receipt Date: 20121011
  Transmission Date: 20130627
  Serious: Yes (Other)
  Sender: FDA-Public Use
  Company Number: JP-ASTRAZENECA-2012SE43701

PATIENT
  Age: 69 Day
  Sex: Female
  Weight: 57 kg

DRUGS (1)
  1. FASLODEX [Suspect]
     Indication: BREAST CANCER
     Route: 030
     Dates: start: 20120313, end: 20120605

REACTIONS (1)
  - Injection site necrosis [Recovering/Resolving]
